FAERS Safety Report 23550123 (Version 1)
Quarter: 2024Q1

REPORT INFORMATION
  Report Type: Spontaneous
  Country: AU (occurrence: AU)
  Receive Date: 20240221
  Receipt Date: 20240221
  Transmission Date: 20240410
  Serious: Yes (Other)
  Sender: FDA-Public Use
  Company Number: AU-ADMA BIOLOGICS INC.-AU-2024ADM000041

PATIENT
  Age: 25 Year
  Sex: Female

DRUGS (2)
  1. HUMAN IMMUNOGLOBULIN G [Suspect]
     Active Substance: HUMAN IMMUNOGLOBULIN G
     Indication: Immune thrombocytopenia
     Dosage: 2 GRAM PER KILOGRAM, SPLIT OVER 2 DAYS
     Route: 042
  2. HUMAN IMMUNOGLOBULIN G [Suspect]
     Active Substance: HUMAN IMMUNOGLOBULIN G
     Dosage: 1 GRAM PER KILOGRAM, FORTNIGHTLY
     Route: 042

REACTIONS (6)
  - Immune thrombocytopenia [Unknown]
  - Condition aggravated [Unknown]
  - Urinary tract infection [Unknown]
  - Haematuria [Unknown]
  - Maternal exposure during pregnancy [Unknown]
  - Off label use [Unknown]
